FAERS Safety Report 14563785 (Version 1)
Quarter: 2018Q1

REPORT INFORMATION
  Report Type: Spontaneous
  Country: US (occurrence: US)
  Receive Date: 20180222
  Receipt Date: 20180222
  Transmission Date: 20180509
  Serious: Yes (Hospitalization, Other)
  Sender: FDA-Public Use
  Company Number: US-GLAXOSMITHKLINE-US2018029387

PATIENT
  Age: 74 Year
  Sex: Female

DRUGS (16)
  1. ALLOPURINOL. [Concomitant]
     Active Substance: ALLOPURINOL
  2. COQ10 [Concomitant]
     Active Substance: UBIDECARENONE
  3. BREO ELLIPTA [Suspect]
     Active Substance: FLUTICASONE FUROATE\VILANTEROL TRIFENATATE
     Indication: CHRONIC OBSTRUCTIVE PULMONARY DISEASE
     Dosage: 1 PUFF(S), QD
     Route: 055
     Dates: start: 201710
  4. DOXYCYCLINE. [Concomitant]
     Active Substance: DOXYCYCLINE
  5. FLUTICASONE NASAL SPRAY [Concomitant]
     Active Substance: FLUTICASONE
  6. FOLIC ACID. [Concomitant]
     Active Substance: FOLIC ACID
  7. CYCLOBENZAPRINE. [Concomitant]
     Active Substance: CYCLOBENZAPRINE
  8. PRAVASTATIN. [Concomitant]
     Active Substance: PRAVASTATIN
  9. AMITRIPTYLINE [Concomitant]
     Active Substance: AMITRIPTYLINE
  10. LOSARTAN. [Concomitant]
     Active Substance: LOSARTAN
  11. VITAMIN C [Concomitant]
     Active Substance: ASCORBIC ACID
  12. ZETIA [Concomitant]
     Active Substance: EZETIMIBE
  13. VITAMIN B12 [Concomitant]
     Active Substance: CYANOCOBALAMIN
  14. CETIRIZINE [Concomitant]
     Active Substance: CETIRIZINE HYDROCHLORIDE
  15. HYDROCODONE [Concomitant]
     Active Substance: HYDROCODONE
  16. OMEGA 3 [Concomitant]
     Active Substance: OMEGA-3 FATTY ACIDS

REACTIONS (7)
  - Spinal operation [Unknown]
  - Throat irritation [Not Recovered/Not Resolved]
  - Product use issue [Not Recovered/Not Resolved]
  - Cystitis [Unknown]
  - Tongue discomfort [Not Recovered/Not Resolved]
  - Pharyngeal hypoaesthesia [Not Recovered/Not Resolved]
  - Pneumonia [Unknown]

NARRATIVE: CASE EVENT DATE: 201710
